FAERS Safety Report 7481194-0 (Version None)
Quarter: 2011Q2

REPORT INFORMATION
  Report Type: 
  Country: None (occurrence: None)
  Receive Date: 20110512
  Receipt Date: 20110512
  Transmission Date: 20111010
  Serious: Yes (Life-Threatening)
  Sender: FDA-Public Use
  Company Number: None

PATIENT
  Age: 78 Year
  Sex: Male
  Weight: 88.4514 kg

DRUGS (2)
  1. ARICEPT [Suspect]
     Indication: DEMENTIA ALZHEIMER'S TYPE
     Dosage: 10 MG 1 2 DAY
     Dates: start: 20110408
  2. DONEPEZIL HCL [Suspect]

REACTIONS (6)
  - FEELING ABNORMAL [None]
  - DIZZINESS [None]
  - VOMITING [None]
  - BALANCE DISORDER [None]
  - HEADACHE [None]
  - INSOMNIA [None]
